FAERS Safety Report 4414702-4 (Version None)
Quarter: 2004Q3

REPORT INFORMATION
  Report Type: 
  Country: None (occurrence: None)
  Receive Date: 20040804
  Receipt Date: 20030519
  Transmission Date: 20050211
  Serious: No
  Sender: FDA-Public Use
  Company Number: US-BRISTOL-MYERS SQUIBB COMPANY-12279097

PATIENT
  Age: 62 Year
  Sex: Female
  Weight: 102 kg

DRUGS (4)
  1. GLUCOVANCE [Suspect]
     Indication: DIABETES MELLITUS
     Dosage: DURATION OF THERAPY:  ^3 TO 4 YEARS^
     Route: 048
     Dates: start: 20010101
  2. PLAVIX [Concomitant]
     Dosage: DURATION OF THERAPY:  ^1 1/2 YEARS^
     Route: 048
  3. LIPITOR [Concomitant]
  4. TRAZODONE HCL [Concomitant]

REACTIONS (2)
  - DIARRHOEA [None]
  - PRURITUS [None]
